FAERS Safety Report 25287935 (Version 1)
Quarter: 2025Q2

REPORT INFORMATION
  Report Type: Spontaneous
  Country: US (occurrence: US)
  Receive Date: 20250509
  Receipt Date: 20250509
  Transmission Date: 20250717
  Serious: No
  Sender: ABBVIE
  Company Number: US-ABBVIE-6266969

PATIENT
  Sex: Female

DRUGS (1)
  1. UBRELVY [Suspect]
     Active Substance: UBROGEPANT
     Indication: Migraine
     Route: 048

REACTIONS (8)
  - Headache [Unknown]
  - Eye disorder [Unknown]
  - Cerebral disorder [Unknown]
  - Off label use [Unknown]
  - Somnolence [Recovered/Resolved]
  - Pain [Unknown]
  - Pain in extremity [Unknown]
  - Chest pain [Unknown]
